FAERS Safety Report 26208587 (Version 1)
Quarter: 2025Q4

REPORT INFORMATION
  Report Type: Spontaneous
  Country: US (occurrence: None)
  Receive Date: 20251227
  Receipt Date: 20251227
  Transmission Date: 20260118
  Serious: Yes (Other)
  Sender: FDA-CTU
  Company Number: None

PATIENT
  Age: 2 Week
  Sex: Male

DRUGS (2)
  1. VASELINE PURE BABY [Suspect]
     Active Substance: PETROLATUM
     Indication: Dermatitis diaper
     Dosage: DIAPER CHANGES TOPICAL
     Route: 061
     Dates: start: 20251217, end: 20251224
  2. MUPIROCIN [Concomitant]
     Active Substance: MUPIROCIN

REACTIONS (1)
  - Dermatitis diaper [None]

NARRATIVE: CASE EVENT DATE: 20251218
